FAERS Safety Report 12584296 (Version 4)
Quarter: 2016Q3

REPORT INFORMATION
  Report Type: Spontaneous
  Country: JP (occurrence: JP)
  Receive Date: 20160722
  Receipt Date: 20160906
  Transmission Date: 20161109
  Serious: Yes (Other)
  Sender: FDA-Public Use
  Company Number: JP-PFIZER INC-2016350444

PATIENT
  Age: 87 Year
  Sex: Male

DRUGS (15)
  1. CELECOX [Suspect]
     Active Substance: CELECOXIB
     Indication: JOINT EFFUSION
  2. NATRIX [Concomitant]
     Active Substance: INDAPAMIDE
     Dosage: UNK UNK, UNKNOWN FREQ
     Route: 065
  3. CELECOX [Suspect]
     Active Substance: CELECOXIB
     Indication: OSTEOARTHRITIS
     Dosage: 100 MG, 2X/DAY
     Route: 048
     Dates: start: 20160628, end: 20160712
  4. YAKUBAN [Concomitant]
     Active Substance: FLURBIPROFEN
     Indication: OSTEOARTHRITIS
     Dosage: 60 MG, 2X/DAY
     Route: 061
     Dates: start: 20110602
  5. DIOVAN [Concomitant]
     Active Substance: VALSARTAN
     Dosage: UNK UNK, UNKNOWN FREQ.
     Route: 048
  6. CELECOX [Suspect]
     Active Substance: CELECOXIB
     Indication: ANALGESIC THERAPY
  7. HIRUDOID [Concomitant]
     Active Substance: GLYCOSAMINOGLYCANS
     Indication: ASTEATOSIS
     Dosage: UNK UNK, THRICE DAILY
     Route: 061
     Dates: start: 20150317
  8. METHYCOBAL [Concomitant]
     Active Substance: METHYLCOBALAMIN
     Dosage: UNK
     Route: 048
  9. MYSLEE [Concomitant]
     Active Substance: ZOLPIDEM TARTRATE
     Dosage: UNK UNK, UNKNOWN FREQ.
     Route: 048
  10. NORVASC [Concomitant]
     Active Substance: AMLODIPINE BESYLATE
     Dosage: UNK UNK, UNKNOWN FREQ
     Route: 048
  11. LOXOPROFEN SODIUM [Concomitant]
     Active Substance: LOXOPROFEN SODIUM
     Dosage: UNK UNK, UNKNOWN FREQ
     Route: 065
  12. ZATFERON [Concomitant]
     Dosage: UNK UNK, UNKNOWN FREQ.
     Route: 065
  13. NAPAGELN [Concomitant]
     Dosage: UNK UNK, UNKNOWN FREQ
     Route: 065
  14. CELECOX [Suspect]
     Active Substance: CELECOXIB
     Indication: ANTIINFLAMMATORY THERAPY
  15. REBAMIPIDE [Concomitant]
     Active Substance: REBAMIPIDE
     Indication: CHRONIC GASTRITIS
     Dosage: 100 MG, 3X/DAY
     Route: 048
     Dates: start: 20160109, end: 20160712

REACTIONS (1)
  - Toxic skin eruption [Recovered/Resolved]

NARRATIVE: CASE EVENT DATE: 20160709
